FAERS Safety Report 6233063-1 (Version None)
Quarter: 2009Q2

REPORT INFORMATION
  Report Type: 
  Country: None (occurrence: None)
  Receive Date: 20090617
  Receipt Date: 20090608
  Transmission Date: 20091009
  Serious: Yes (Other)
  Sender: FDA-Public Use
  Company Number: US-TEVA-197694USA

PATIENT
  Sex: Male

DRUGS (1)
  1. CLARAVIS [Suspect]
     Dosage: THE SUSPECT MEDICATION WAS TAKEN BY THE MALE PARTNER
     Route: 065

REACTIONS (1)
  - PATERNAL DRUGS AFFECTING FOETUS [None]
